FAERS Safety Report 6768100-9 (Version None)
Quarter: 2010Q2

REPORT INFORMATION
  Report Type: 
  Country: None (occurrence: None)
  Receive Date: 20100614
  Receipt Date: 20100609
  Transmission Date: 20101027
  Serious: Yes (Death, Hospitalization)
  Sender: FDA-Public Use
  Company Number: US-SANOFI-AVENTIS-2010SA033186

PATIENT
  Age: 70 Year
  Sex: Male

DRUGS (12)
  1. OXALIPLATIN [Suspect]
     Indication: GASTRIC CANCER
     Route: 042
     Dates: start: 20100428, end: 20100428
  2. BEVACIZUMAB [Suspect]
     Indication: GASTRIC CANCER
     Route: 042
     Dates: start: 20100428, end: 20100428
  3. CAPECITABINE [Suspect]
     Indication: GASTRIC CANCER
     Dosage: DAILY D1-14 EACH CYCLE
     Route: 048
     Dates: start: 20100428, end: 20100510
  4. ASPIRIN [Concomitant]
  5. ATIVAN [Concomitant]
  6. COLACE [Concomitant]
  7. CRESTOR [Concomitant]
  8. MEGACE [Concomitant]
  9. PERCOCET [Concomitant]
  10. PLAVIX [Concomitant]
  11. PROCTOFOAM [Concomitant]
  12. METOCLOPRAMIDE [Concomitant]

REACTIONS (3)
  - DEATH [None]
  - DEHYDRATION [None]
  - VOMITING [None]
